FAERS Safety Report 19095388 (Version 1)
Quarter: 2021Q2

REPORT INFORMATION
  Report Type: Report from Study
  Country: CN (occurrence: CN)
  Receive Date: 20210406
  Receipt Date: 20210406
  Transmission Date: 20210717
  Serious: Yes (Other)
  Sender: FDA-Public Use
  Company Number: CN-SUN PHARMACEUTICAL INDUSTRIES LTD-2021R1-289603

PATIENT
  Age: 23 Year
  Sex: Male

DRUGS (7)
  1. AMOXICILLIN. [Suspect]
     Active Substance: AMOXICILLIN
     Indication: VOMITING
  2. AMOXICILLIN. [Suspect]
     Active Substance: AMOXICILLIN
     Indication: NAUSEA
  3. RABIES VACCINE [Concomitant]
     Active Substance: RABIES VACCINE
     Indication: PRODUCT USED FOR UNKNOWN INDICATION
     Dosage: UNK
     Route: 065
  4. PARACETAMOL [Suspect]
     Active Substance: ACETAMINOPHEN
     Indication: DIZZINESS
     Dosage: UNK
     Route: 065
  5. PARACETAMOL [Suspect]
     Active Substance: ACETAMINOPHEN
     Indication: NAUSEA
  6. AMOXICILLIN. [Suspect]
     Active Substance: AMOXICILLIN
     Indication: DIZZINESS
     Dosage: UNK
     Route: 065
  7. PARACETAMOL [Suspect]
     Active Substance: ACETAMINOPHEN
     Indication: VOMITING

REACTIONS (1)
  - Reversible splenial lesion syndrome [Recovered/Resolved]
